FAERS Safety Report 8529419-4 (Version None)
Quarter: 2012Q3

REPORT INFORMATION
  Report Type: 
  Country: None (occurrence: None)
  Receive Date: 20120723
  Receipt Date: 20120713
  Transmission Date: 20120928
  Serious: Yes (Hospitalization, Other)
  Sender: FDA-Public Use
  Company Number: JP-JNJFOC-20120701952

PATIENT
  Age: 8 Decade
  Sex: Female

DRUGS (6)
  1. UNASYN [Concomitant]
     Indication: HEPATIC FUNCTION ABNORMAL
     Route: 041
     Dates: start: 20120628, end: 20120704
  2. SIMPONI [Suspect]
     Indication: RHEUMATOID ARTHRITIS
     Route: 058
     Dates: start: 20120502, end: 20120601
  3. PREDNISOLONE [Suspect]
     Indication: RHEUMATOID ARTHRITIS
     Route: 065
     Dates: start: 20120502
  4. PROCESSE D ACONITE ROOT [Suspect]
     Indication: PRODUCT USED FOR UNKNOWN INDICATION
     Route: 048
     Dates: start: 20120614
  5. METHOTREXATE [Suspect]
     Indication: RHEUMATOID ARTHRITIS
     Route: 065
     Dates: start: 20120502
  6. ALL OTHER THERAPEUTIC AGENTS [Concomitant]
     Route: 048
     Dates: start: 20120601

REACTIONS (4)
  - PNEUMONIA [None]
  - MALAISE [None]
  - HEPATIC FUNCTION ABNORMAL [None]
  - ARTHRALGIA [None]
